FAERS Safety Report 13018325 (Version 1)
Quarter: 2016Q4

REPORT INFORMATION
  Report Type: Spontaneous
  Country: CA (occurrence: CA)
  Receive Date: 20161212
  Receipt Date: 20161212
  Transmission Date: 20170207
  Serious: No
  Sender: FDA-Public Use
  Company Number: CA-LPDUSPRD-20150996

PATIENT
  Age: 47 Year
  Sex: Female

DRUGS (4)
  1. VENOFER [Suspect]
     Active Substance: IRON SUCROSE
     Dosage: 200 MG / 250 CC NACL IN 2.5 HR
     Route: 042
     Dates: end: 20151203
  2. ACETAMINOPHEN. [Concomitant]
     Active Substance: ACETAMINOPHEN
     Dosage: DOSE NOT PROVIDED
     Route: 065
     Dates: end: 20151203
  3. DIPHENHYDRAMINE. [Concomitant]
     Active Substance: DIPHENHYDRAMINE
     Dosage: DOSE NOT PROVIDED
     Route: 065
     Dates: end: 20151203
  4. HYDROCORTISONE. [Concomitant]
     Active Substance: HYDROCORTISONE
     Dosage: DOSE NOT PROVIDED
     Route: 065
     Dates: end: 20151203

REACTIONS (3)
  - Breast pain [Unknown]
  - Adverse reaction [Unknown]
  - Infusion site swelling [Unknown]

NARRATIVE: CASE EVENT DATE: 20151203
